FAERS Safety Report 15486119 (Version 1)
Quarter: 2018Q4

REPORT INFORMATION
  Report Type: Spontaneous
  Country: US (occurrence: US)
  Receive Date: 20181011
  Receipt Date: 20181011
  Transmission Date: 20190205
  Serious: No
  Sender: FDA-Public Use
  Company Number: US-TEVA-806451ACC

PATIENT
  Age: 90 Year
  Sex: Female

DRUGS (1)
  1. CICLOPIROX. [Suspect]
     Active Substance: CICLOPIROX
     Indication: FUNGAL INFECTION

REACTIONS (3)
  - Pruritus [Unknown]
  - Alopecia [Unknown]
  - Erythema [Unknown]
